FAERS Safety Report 13386947 (Version 1)
Quarter: 2017Q1

REPORT INFORMATION
  Report Type: Spontaneous
  Country: GB (occurrence: GB)
  Receive Date: 20170330
  Receipt Date: 20170330
  Transmission Date: 20170429
  Serious: Yes (Hospitalization)
  Sender: FDA-Public Use
  Company Number: PHFR2017GB002082

PATIENT
  Sex: Male

DRUGS (1)
  1. PANOBINOSTAT [Suspect]
     Active Substance: PANOBINOSTAT
     Indication: PRODUCT USED FOR UNKNOWN INDICATION
     Dosage: 10 MG, (APPROXIMATE FOR THE FOUR WEEK)
     Route: 065

REACTIONS (3)
  - Crepitations [Unknown]
  - Dyspnoea [Unknown]
  - Cough [Unknown]
